FAERS Safety Report 4615824-5 (Version None)
Quarter: 2005Q2

REPORT INFORMATION
  Report Type: 
  Country: None (occurrence: None)
  Receive Date: 20050309
  Receipt Date: 20040420
  Transmission Date: 20051028
  Serious: Yes (Hospitalization)
  Sender: FDA-Public Use
  Company Number: 2004027402

PATIENT
  Age: 84 Year
  Sex: Female

DRUGS (8)
  1. PROCARDIA [Suspect]
     Indication: HYPERTENSION
     Dosage: 10 MG (ONCE)
     Dates: start: 20020808, end: 20020808
  2. ASPIRIN [Concomitant]
  3. METOPROLOL TARTRATE [Concomitant]
  4. CEFALEXIN MONOHYDRATE (CEFALEXNI MONOHYDRATE) [Concomitant]
  5. CIPROFLOXACIN [Concomitant]
  6. POTASSIUM CHLORIDE [Concomitant]
  7. NITROGLYCERIN [Concomitant]
  8. GATIFLOXACIN [Concomitant]

REACTIONS (1)
  - SYNCOPE [None]
